FAERS Safety Report 20896197 (Version 3)
Quarter: 2022Q3

REPORT INFORMATION
  Report Type: Report from Study
  Country: US (occurrence: US)
  Receive Date: 20220531
  Receipt Date: 20220907
  Transmission Date: 20221027
  Serious: No
  Sender: FDA-Public Use
  Company Number: US-NOVARTISTESTPH-NVSC2022US124950

PATIENT
  Sex: Female

DRUGS (1)
  1. KESIMPTA [Suspect]
     Active Substance: OFATUMUMAB
     Indication: Multiple sclerosis
     Dosage: 20 MG, QW (INJECT 1 PEN SUBCUTANEOUSLY AT WEEK 1, 2, 4, AND THEN EVERY 4 WEEKS THEREAFTER)
     Route: 058

REACTIONS (3)
  - Labyrinthitis [Unknown]
  - Illness [Unknown]
  - Weight decreased [Unknown]
